FAERS Safety Report 24734622 (Version 1)
Quarter: 2024Q4

REPORT INFORMATION
  Report Type: Spontaneous
  Country: FR (occurrence: FR)
  Receive Date: 20241214
  Receipt Date: 20241214
  Transmission Date: 20250115
  Serious: Yes (Hospitalization, Other)
  Sender: AUROBINDO
  Company Number: FR-AFSSAPS-AVNY2024000512

PATIENT
  Age: 62 Year
  Sex: Female
  Weight: 48.5 kg

DRUGS (5)
  1. ALPRAZOLAM [Suspect]
     Active Substance: ALPRAZOLAM
     Indication: Product used for unknown indication
     Dosage: 2 BOITES
     Route: 048
     Dates: start: 20241004
  2. TRAMADOL [Suspect]
     Active Substance: TRAMADOL
     Indication: Product used for unknown indication
     Dosage: 400 MILLIGRAM, ONCE A DAY
     Route: 048
     Dates: end: 20241003
  3. TRAMADOL [Suspect]
     Active Substance: TRAMADOL
     Dosage: (PATIENTE AURAIT PRISSES M?DICAMENTS DU MOIS EN 1 SEMAINE + 2 BOITES DE TRAMADOL
     Route: 048
     Dates: start: 20241004, end: 20241011
  4. AMITRIPTYLINE HYDROCHLORIDE [Suspect]
     Active Substance: AMITRIPTYLINE HYDROCHLORIDE
     Indication: Product used for unknown indication
     Dosage: 25 MILLIGRAM, ONCE A DAY
     Route: 048
     Dates: end: 20241003
  5. AMITRIPTYLINE HYDROCHLORIDE [Suspect]
     Active Substance: AMITRIPTYLINE HYDROCHLORIDE
     Dosage: PATIENTE AURAIT PRIS SES M?DICAMENTS DU MOIS EN 1 SEMAINE
     Route: 048
     Dates: start: 20241004, end: 20241011

REACTIONS (6)
  - Drug use disorder [Recovered/Resolved]
  - Serotonin syndrome [Recovered/Resolved]
  - Stress cardiomyopathy [Recovering/Resolving]
  - Delusional disorder, persecutory type [Recovered/Resolved]
  - Language disorder [Recovered/Resolved]
  - Mydriasis [Recovered/Resolved]

NARRATIVE: CASE EVENT DATE: 20241001
